FAERS Safety Report 22599020 (Version 2)
Quarter: 2023Q2

REPORT INFORMATION
  Report Type: Report from Study
  Country: KR (occurrence: KR)
  Receive Date: 20230614
  Receipt Date: 20230629
  Transmission Date: 20230722
  Serious: Yes (Hospitalization)
  Sender: FDA-Public Use
  Company Number: KR-ELI_LILLY_AND_COMPANY-KR202306005146

PATIENT
  Age: 66 Year
  Sex: Female
  Weight: 48.8 kg

DRUGS (9)
  1. BARICITINIB [Suspect]
     Active Substance: BARICITINIB
     Indication: Rheumatoid arthritis
     Dosage: 4 MG, DAILY
     Route: 048
     Dates: start: 20230222, end: 20230517
  2. ARCOXIA [Concomitant]
     Active Substance: ETORICOXIB
     Indication: Rheumatoid arthritis
     Dosage: 30 MG, UNKNOWN
     Route: 065
     Dates: start: 20180820
  3. METHOTREXATE [Concomitant]
     Active Substance: METHOTREXATE
     Indication: Rheumatoid arthritis
     Dosage: 2.5 MG, UNKNOWN
     Route: 065
     Dates: start: 20190410
  4. ILDONG FOLIC ACID [Concomitant]
     Indication: Rheumatoid arthritis
     Dosage: 1 MG, UNKNOWN
     Route: 065
     Dates: start: 200601
  5. SOLONDO [PREDNISOLONE] [Concomitant]
     Indication: Rheumatoid arthritis
     Dosage: UNK, UNKNOWN
     Route: 065
     Dates: start: 20220217, end: 20230515
  6. SOLONDO [PREDNISOLONE] [Concomitant]
     Dosage: UNK, UNKNOWN
     Route: 065
     Dates: start: 20230517
  7. K CAB [Concomitant]
     Indication: Prophylaxis
     Dosage: 50 MG, UNKNOWN
     Route: 065
     Dates: start: 20200602
  8. ZOPYRIN [Concomitant]
     Indication: Rheumatoid arthritis
     Dosage: 500 MG, UNKNOWN
     Route: 065
     Dates: start: 20220526
  9. HYDROCORTISONE SODIUM SUCCINATE [Concomitant]
     Active Substance: HYDROCORTISONE SODIUM SUCCINATE
     Indication: Prophylaxis
     Dosage: 100 MG, UNKNOWN
     Route: 065
     Dates: start: 20230517, end: 20230517

REACTIONS (1)
  - Gastroenteritis [Recovered/Resolved]

NARRATIVE: CASE EVENT DATE: 20230526
